FAERS Safety Report 4364029-4 (Version None)
Quarter: 2004Q2

REPORT INFORMATION
  Report Type: 
  Country: None (occurrence: None)
  Receive Date: 20040519
  Receipt Date: 20040512
  Transmission Date: 20050107
  Serious: Yes (Hospitalization)
  Sender: FDA-Public Use
  Company Number: 2003181450JP

PATIENT
  Age: 69 Year
  Sex: Female

DRUGS (5)
  1. CABERGOLINE [Suspect]
     Indication: PARKINSON'S DISEASE
     Dosage: 1 MG, QD, ORAL; 2 MG, QD, ORAL
     Route: 048
     Dates: start: 20030428, end: 20030508
  2. CABERGOLINE [Suspect]
     Indication: PARKINSON'S DISEASE
     Dosage: 1 MG, QD, ORAL; 2 MG, QD, ORAL
     Route: 048
     Dates: start: 20030509, end: 20030601
  3. CARBIDOPA AND LEVODOPA [Suspect]
     Indication: PARKINSON'S DISEASE
     Dosage: 200 MG, ORAL; 300 MG, ORAL
     Route: 048
     Dates: start: 20030328, end: 20030401
  4. CARBIDOPA AND LEVODOPA [Suspect]
     Indication: PARKINSON'S DISEASE
     Dosage: 200 MG, ORAL; 300 MG, ORAL
     Route: 048
     Dates: start: 20030411, end: 20030601
  5. BUP-4  (PROPIVERINE HYDROCHLORIDE) [Concomitant]

REACTIONS (2)
  - NEUROLEPTIC MALIGNANT SYNDROME [None]
  - PYELONEPHRITIS [None]
